FAERS Safety Report 9691183 (Version 4)
Quarter: 2014Q2

REPORT INFORMATION
  Report Type: Spontaneous
  Country: US (occurrence: US)
  Receive Date: 20131115
  Receipt Date: 20140531
  Transmission Date: 20141212
  Serious: Yes (Hospitalization, Other)
  Sender: FDA-Public Use
  Company Number: US-009507513-1311USA005844

PATIENT
  Sex: Male
  Weight: 108.39 kg

DRUGS (11)
  1. JANUVIA [Suspect]
     Indication: TYPE 2 DIABETES MELLITUS
     Dosage: 100 MG, QD
     Route: 048
     Dates: start: 20081022, end: 200908
  2. JANUVIA [Suspect]
     Indication: DIABETES MELLITUS INADEQUATE CONTROL
     Dosage: 100 MG, QD
     Route: 048
     Dates: start: 20100422, end: 201103
  3. BYETTA [Suspect]
     Indication: TYPE 2 DIABETES MELLITUS
     Dosage: 5 MICROGRAM, QD
     Dates: start: 200908
  4. GLYBURIDE [Concomitant]
     Indication: TYPE 2 DIABETES MELLITUS
  5. INSULIN [Concomitant]
     Indication: TYPE 2 DIABETES MELLITUS
  6. METFORMIN [Concomitant]
     Indication: TYPE 2 DIABETES MELLITUS
     Dosage: 500 MG, BID
  7. VITAMINS (UNSPECIFIED) [Concomitant]
  8. VITAMIN E [Concomitant]
  9. CIALIS [Concomitant]
     Indication: ERECTILE DYSFUNCTION
     Dosage: 10 MG, UNK
  10. OMEPRAZOLE [Concomitant]
     Indication: GASTROOESOPHAGEAL REFLUX DISEASE
     Dosage: 20 MG, QD
  11. LEVITRA [Concomitant]
     Indication: ERECTILE DYSFUNCTION
     Dosage: 10 MG, UNK

REACTIONS (116)
  - Cholangiocarcinoma [Unknown]
  - Pancreatic neoplasm [Unknown]
  - Pancreaticoduodenectomy [Unknown]
  - Enterobacter bacteraemia [Unknown]
  - Enterocutaneous fistula [Unknown]
  - Biliary drainage [Unknown]
  - Radiotherapy [Unknown]
  - Liver abscess [Recovered/Resolved]
  - Impaired gastric emptying [Unknown]
  - Loss of consciousness [Unknown]
  - Pancreatic stent placement [Unknown]
  - Pancreatic sphincterotomy [Unknown]
  - Enterococcal bacteraemia [Recovered/Resolved]
  - Escherichia bacteraemia [Recovered/Resolved]
  - Abscess drainage [Unknown]
  - Axillary vein thrombosis [Unknown]
  - Device occlusion [Unknown]
  - Dilatation intrahepatic duct acquired [Unknown]
  - Bile duct stenosis [Unknown]
  - International normalised ratio increased [Unknown]
  - Haematocrit decreased [Unknown]
  - Liver abscess [Unknown]
  - Urinary tract infection [Unknown]
  - Adverse drug reaction [Unknown]
  - Cellulitis [Unknown]
  - International normalised ratio abnormal [Unknown]
  - Wound [Unknown]
  - Dysphagia [Recovering/Resolving]
  - Cholangitis [Unknown]
  - Urosepsis [Unknown]
  - Bacteraemia [Unknown]
  - Pneumonia [Unknown]
  - Atelectasis [Unknown]
  - Pleural effusion [Unknown]
  - Ascites [Unknown]
  - Portal vein thrombosis [Not Recovered/Not Resolved]
  - Catheter placement [Unknown]
  - Catheter removal [Unknown]
  - Device dislocation [Unknown]
  - Bile duct adenocarcinoma [Unknown]
  - Pancreatic mass [Unknown]
  - Haemoglobin decreased [Unknown]
  - Gastrooesophageal reflux disease [Unknown]
  - Skin exfoliation [Unknown]
  - Anxiety [Unknown]
  - Depression [Unknown]
  - Emotional distress [Unknown]
  - Hypotension [Unknown]
  - Diabetic neuropathy [Unknown]
  - Eye disorder [Unknown]
  - Gastrointestinal viral infection [Recovered/Resolved]
  - Flank pain [Unknown]
  - Cyst [Unknown]
  - Sleep apnoea syndrome [Unknown]
  - Genital herpes [Unknown]
  - Vitamin D deficiency [Unknown]
  - Hand fracture [Unknown]
  - Toe operation [Unknown]
  - Bone lesion excision [Unknown]
  - Melaena [Unknown]
  - Contusion [Recovering/Resolving]
  - Peptic ulcer [Unknown]
  - Diabetic autonomic neuropathy [Unknown]
  - Atrial fibrillation [Unknown]
  - Glaucoma [Unknown]
  - Hyperkeratosis [Unknown]
  - Pruritus [Recovered/Resolved]
  - Contusion [Unknown]
  - Diabetic eye disease [Unknown]
  - Catheter site extravasation [Unknown]
  - Weight decreased [Unknown]
  - Gastric polyps [Unknown]
  - Diverticulum [Unknown]
  - Colon adenoma [Unknown]
  - Surgical failure [Unknown]
  - Oedema peripheral [Unknown]
  - Atrioventricular block first degree [Unknown]
  - Peripheral venous disease [Not Recovered/Not Resolved]
  - Costochondritis [Unknown]
  - Limb operation [Unknown]
  - Blood sodium decreased [Unknown]
  - Bladder diverticulum [Unknown]
  - Gastric mucosal hypertrophy [Unknown]
  - Pleural effusion [Unknown]
  - Atelectasis [Unknown]
  - Mucosal inflammation [Recovered/Resolved]
  - Fungal infection [Unknown]
  - Asthenia [Unknown]
  - Hiccups [Unknown]
  - Blood phosphorus decreased [Unknown]
  - Decubitus ulcer [Recovered/Resolved]
  - Scleral discolouration [Unknown]
  - Portal vein thrombosis [Not Recovered/Not Resolved]
  - Dizziness [Unknown]
  - Insomnia [Unknown]
  - Deep vein thrombosis [Not Recovered/Not Resolved]
  - Blood urea increased [Unknown]
  - Hyperchlorhydria [Recovered/Resolved]
  - Blood glucose abnormal [Unknown]
  - Blood glucose increased [Unknown]
  - Glossodynia [Unknown]
  - Nipple disorder [Recovering/Resolving]
  - Abdominal distension [Not Recovered/Not Resolved]
  - Haemoglobin abnormal [Unknown]
  - Urticaria [Recovered/Resolved]
  - Headache [Unknown]
  - Myalgia [Unknown]
  - Abdominal pain upper [Unknown]
  - Constipation [Unknown]
  - Drug ineffective [Unknown]
  - Drug ineffective [Unknown]
  - Drug ineffective [Unknown]
  - Blood creatinine increased [Unknown]
  - Contusion [Unknown]
  - Abdominal pain [Not Recovered/Not Resolved]
  - Diarrhoea [Not Recovered/Not Resolved]
